FAERS Safety Report 6842491-2 (Version None)
Quarter: 2010Q3

REPORT INFORMATION
  Report Type: 
  Country: None (occurrence: None)
  Receive Date: 20100714
  Receipt Date: 20071105
  Transmission Date: 20110219
  Serious: Yes (Other)
  Sender: FDA-Public Use
  Company Number: PFIZER INC-2007062433

PATIENT
  Sex: Female
  Weight: 60.3 kg

DRUGS (12)
  1. CHANTIX [Suspect]
     Indication: EX-TOBACCO USER
     Dates: start: 20070708
  2. VYTORIN [Concomitant]
     Dates: end: 20071026
  3. ACETYLSALICYLIC ACID [Concomitant]
  4. SINOGAN [Concomitant]
  5. PROMETHAZINE [Concomitant]
  6. PREMPRO [Concomitant]
  7. FISH OIL [Concomitant]
     Dates: start: 20070521
  8. BENICAR [Concomitant]
     Dates: end: 20071026
  9. NIASPAN [Concomitant]
     Dates: end: 20071026
  10. ACYCLOVIR [Concomitant]
  11. TRICOR [Concomitant]
  12. AMOXICILLIN [Concomitant]

REACTIONS (3)
  - BLOOD PRESSURE DECREASED [None]
  - BLOOD PRESSURE INCREASED [None]
  - WEIGHT INCREASED [None]
